FAERS Safety Report 12085060 (Version 2)
Quarter: 2016Q1

REPORT INFORMATION
  Report Type: Spontaneous
  Country: JP (occurrence: JP)
  Receive Date: 20160217
  Receipt Date: 20160318
  Transmission Date: 20160526
  Serious: Yes (Death, Other)
  Sender: FDA-Public Use
  Company Number: PHHY2016JP020717

PATIENT
  Age: 51 Year
  Sex: Male
  Weight: 73 kg

DRUGS (7)
  1. ETOPOSIDE. [Concomitant]
     Active Substance: ETOPOSIDE
     Indication: PRODUCT USED FOR UNKNOWN INDICATION
     Route: 065
  2. CYTARABINE. [Concomitant]
     Active Substance: CYTARABINE
     Indication: PRODUCT USED FOR UNKNOWN INDICATION
     Route: 065
  3. METHYLPREDNISOLONE. [Concomitant]
     Active Substance: METHYLPREDNISOLONE
     Indication: PRODUCT USED FOR UNKNOWN INDICATION
     Route: 065
  4. CISPLATIN. [Concomitant]
     Active Substance: CISPLATIN
     Indication: PRODUCT USED FOR UNKNOWN INDICATION
     Route: 065
  5. CUBICIN [Suspect]
     Active Substance: DAPTOMYCIN
     Indication: FEBRILE NEUTROPENIA
     Dosage: 450 MG, QD
     Route: 042
     Dates: start: 20150523, end: 20150601
  6. MEROPEN [Suspect]
     Active Substance: MEROPENEM
     Indication: FEBRILE NEUTROPENIA
     Dosage: 1000 MG, BID
     Route: 042
     Dates: start: 20150516, end: 20150601
  7. RITUXAN [Concomitant]
     Active Substance: RITUXIMAB
     Indication: PRODUCT USED FOR UNKNOWN INDICATION
     Route: 065

REACTIONS (3)
  - Pneumonia [Fatal]
  - Stenotrophomonas infection [Fatal]
  - Sepsis [Unknown]
